FAERS Safety Report 12395318 (Version 2)
Quarter: 2016Q3

REPORT INFORMATION
  Report Type: Report from Study
  Country: US (occurrence: US)
  Receive Date: 20160523
  Receipt Date: 20160714
  Transmission Date: 20161109
  Serious: Yes (Other)
  Sender: FDA-Public Use
  Company Number: US-VERTEX PHARMACEUTICALS-2015-005395

PATIENT
  Age: 39 Year
  Sex: Male

DRUGS (1)
  1. ORKAMBI [Suspect]
     Active Substance: IVACAFTOR\LUMACAFTOR
     Indication: CYSTIC FIBROSIS
     Dosage: 200-125 MG, BID
     Route: 048
     Dates: start: 20150918

REACTIONS (4)
  - Blood glucose decreased [Not Recovered/Not Resolved]
  - Hyperhidrosis [Not Recovered/Not Resolved]
  - Hot flush [Not Recovered/Not Resolved]
  - Hypoglycaemic unconsciousness [Unknown]

NARRATIVE: CASE EVENT DATE: 20150918
